FAERS Safety Report 24411480 (Version 2)
Quarter: 2024Q4

REPORT INFORMATION
  Report Type: Spontaneous
  Country: PL (occurrence: PL)
  Receive Date: 20241008
  Receipt Date: 20241015
  Transmission Date: 20250115
  Serious: Yes (Hospitalization)
  Sender: BAXTER
  Company Number: PL-BAXTER-2024BAX025452

PATIENT
  Age: 68 Year
  Sex: Male

DRUGS (6)
  1. PROPOFOL [Suspect]
     Active Substance: PROPOFOL
     Indication: Analgesic therapy
     Dosage: 600 MG/60 ML/5 ML/H, CONTINUOUS INFUSION
     Route: 041
  2. PROPOFOL [Suspect]
     Active Substance: PROPOFOL
     Indication: Sedative therapy
  3. MORPHINE [Concomitant]
     Active Substance: MORPHINE
     Indication: Analgesic therapy
     Dosage: 20 MG/50 ML/2 ML/H
     Route: 041
  4. MORPHINE [Concomitant]
     Active Substance: MORPHINE
     Indication: Sedative therapy
  5. NOREPINEPHRINE [Concomitant]
     Active Substance: NOREPINEPHRINE\NOREPINEPHRINE BITARTRATE
     Indication: Hypotension
     Dosage: 8 MG/50 ML/3 ML/H, CONTINUOUS INFUSION, CATECHOLAMINES
     Route: 041
  6. NOREPINEPHRINE [Concomitant]
     Active Substance: NOREPINEPHRINE\NOREPINEPHRINE BITARTRATE
     Indication: Haemodynamic instability

REACTIONS (4)
  - Decubitus ulcer [Recovering/Resolving]
  - Dry gangrene [Recovering/Resolving]
  - Wound secretion [Recovering/Resolving]
  - Skin injury [Recovering/Resolving]
